FAERS Safety Report 16530221 (Version 1)
Quarter: 2019Q3

REPORT INFORMATION
  Report Type: Spontaneous
  Country: US (occurrence: US)
  Receive Date: 20190704
  Receipt Date: 20190704
  Transmission Date: 20191004
  Serious: No
  Sender: FDA-Public Use
  Company Number: US-TEVA-2019-US-1062922

PATIENT
  Sex: Male

DRUGS (3)
  1. OLOPATADINE. [Suspect]
     Active Substance: OLOPATADINE
     Indication: CATARACT OPERATION
     Dosage: ONE DROP IN EACH EYE DAILY
     Route: 047
  2. CELECOXIB. [Concomitant]
     Active Substance: CELECOXIB
     Indication: NEUROPATHY PERIPHERAL
  3. CELECOXIB. [Concomitant]
     Active Substance: CELECOXIB
     Indication: ARTHRITIS
     Dosage: 200 MILLIGRAM DAILY;

REACTIONS (1)
  - Eye irritation [Unknown]
